FAERS Safety Report 18980783 (Version 1)
Quarter: 2021Q1

REPORT INFORMATION
  Report Type: Spontaneous
  Country: HN (occurrence: HN)
  Receive Date: 20210308
  Receipt Date: 20210308
  Transmission Date: 20210420
  Serious: Yes (Other)
  Sender: FDA-Public Use
  Company Number: HN-PFIZER INC-2021223273

PATIENT
  Age: 76 Year
  Sex: Male

DRUGS (1)
  1. NORVASC [Suspect]
     Active Substance: AMLODIPINE BESYLATE
     Dosage: 2 DF, DAILY (ONE AT NOON AND ONE IN THE AFTERNOON)
     Route: 048
     Dates: start: 202101

REACTIONS (2)
  - Cerebral infarction [Unknown]
  - Off label use [Unknown]
